FAERS Safety Report 7659003-6 (Version None)
Quarter: 2011Q3

REPORT INFORMATION
  Report Type: 
  Country: None (occurrence: None)
  Receive Date: 20110805
  Receipt Date: 20110722
  Transmission Date: 20111222
  Serious: Yes (Hospitalization, Other)
  Sender: FDA-Public Use
  Company Number: US-ELI_LILLY_AND_COMPANY-US201106005146

PATIENT
  Sex: Female
  Weight: 53.968 kg

DRUGS (7)
  1. LEVOXYL [Concomitant]
  2. FORTEO [Suspect]
     Indication: OSTEOPOROSIS
     Dosage: 20 UG, QD
     Route: 058
     Dates: start: 20110510, end: 20110608
  3. FORTEO [Suspect]
     Dosage: 20 UG, QD
     Route: 058
  4. BELLADONNA HERB [Concomitant]
  5. DONNATAL [Concomitant]
  6. TRAMADOL HCL [Concomitant]
  7. DOXEPIN [Concomitant]

REACTIONS (3)
  - CARDIAC FAILURE CONGESTIVE [None]
  - NAUSEA [None]
  - ATRIAL FIBRILLATION [None]
